FAERS Safety Report 6695386-1 (Version None)
Quarter: 2010Q2

REPORT INFORMATION
  Report Type: 
  Country: None (occurrence: None)
  Receive Date: 20100423
  Receipt Date: 20100423
  Transmission Date: 20101027
  Serious: Yes (Hospitalization)
  Sender: FDA-Public Use
  Company Number: None

PATIENT
  Age: 72 Year
  Sex: Female
  Weight: 71.6 kg

DRUGS (19)
  1. CEFAZOLIN [Suspect]
     Indication: ANTIBIOTIC PROPHYLAXIS
     Dosage: ONCE IV RECENT PRE-OPERATIVELY
     Route: 042
  2. CEFAZOLIN [Suspect]
     Indication: PREOPERATIVE CARE
     Dosage: ONCE IV RECENT PRE-OPERATIVELY
     Route: 042
  3. NORCO [Concomitant]
  4. PERCOCET [Concomitant]
  5. TYLENOL-500 [Concomitant]
  6. MORPHINE [Concomitant]
  7. MORPHINE [Concomitant]
  8. ZOFRAN [Concomitant]
  9. PHENERGAN [Concomitant]
  10. DARVON [Concomitant]
  11. AMBIEN [Concomitant]
  12. DS 1/2 NS [Concomitant]
  13. NAPROXEN [Concomitant]
  14. PREVACID [Concomitant]
  15. REGLAN [Concomitant]
  16. SYNTHROID [Concomitant]
  17. TRAMADOL HCL [Concomitant]
  18. VIT-D [Concomitant]
  19. XANAX [Concomitant]

REACTIONS (3)
  - FACE OEDEMA [None]
  - LIP SWELLING [None]
  - PROCEDURAL COMPLICATION [None]
